FAERS Safety Report 9826845 (Version 2)
Quarter: 2013Q4

REPORT INFORMATION
  Report Type: Spontaneous
  Country: US (occurrence: None)
  Receive Date: 20131223
  Receipt Date: 20131223
  Transmission Date: 20140711
  Serious: Yes (Other)
  Sender: FDA-Public Use
  Company Number: 221417LEO

PATIENT
  Sex: Female

DRUGS (1)
  1. PICATO [Suspect]
     Indication: ACTINIC KERATOSIS
     Route: 061
     Dates: start: 20130422, end: 20130424

REACTIONS (5)
  - Application site exfoliation [None]
  - Application site swelling [None]
  - Application site reaction [None]
  - Eye swelling [None]
  - Inappropriate schedule of drug administration [None]
